FAERS Safety Report 18089124 (Version 15)
Quarter: 2023Q1

REPORT INFORMATION
  Report Type: Other
  Country: CA (occurrence: None)
  Receive Date: 20200730
  Receipt Date: 20230130
  Transmission Date: 20230417
  Serious: Yes (Other)
  Sender: FDA-Public Use
  Company Number: CA-ROCHE-2433510

PATIENT
  Age: 38 Year
  Sex: Male

DRUGS (7)
  1. OCREVUS [Suspect]
     Active Substance: OCRELIZUMAB
     Indication: Relapsing-remitting multiple sclerosis
     Dosage: THEN 600 MG EVERY 6 MONTH
     Route: 042
     Dates: start: 20190310
  2. ZOPICLONE [Concomitant]
     Active Substance: ZOPICLONE
  3. BIOTIN [Concomitant]
     Active Substance: BIOTIN
  4. CRANBERRY [Concomitant]
     Active Substance: CRANBERRY
  5. MAGNESIUM [Concomitant]
     Active Substance: MAGNESIUM
  6. MELATONIN [Concomitant]
     Active Substance: MELATONIN
  7. VITAMIN C [Concomitant]
     Active Substance: ASCORBIC ACID

REACTIONS (29)
  - Chalazion [Not Recovered/Not Resolved]
  - CD19 lymphocytes decreased [Unknown]
  - Nephrolithiasis [Recovered/Resolved]
  - Cough [Not Recovered/Not Resolved]
  - Rhinorrhoea [Not Recovered/Not Resolved]
  - Productive cough [Not Recovered/Not Resolved]
  - Throat irritation [Not Recovered/Not Resolved]
  - Muscle spasticity [Unknown]
  - Joint stiffness [Unknown]
  - Arthralgia [Unknown]
  - Chest discomfort [Unknown]
  - Gastroenteritis viral [Recovered/Resolved]
  - Muscular weakness [Recovered/Resolved]
  - Feeling abnormal [Recovered/Resolved]
  - Eye pain [Recovered/Resolved]
  - Skin tightness [Recovered/Resolved]
  - Muscle spasms [Recovered/Resolved]
  - Gastric infection [Recovered/Resolved]
  - Diarrhoea [Recovered/Resolved]
  - Vomiting [Recovered/Resolved]
  - Pyrexia [Recovered/Resolved]
  - Chills [Recovered/Resolved]
  - Headache [Recovered/Resolved]
  - Upper respiratory tract congestion [Unknown]
  - Eye disorder [Not Recovered/Not Resolved]
  - Fall [Unknown]
  - Skin laceration [Recovering/Resolving]
  - Nasal congestion [Recovering/Resolving]
  - Scab [Unknown]

NARRATIVE: CASE EVENT DATE: 20190901
